FAERS Safety Report 8687746 (Version 4)
Quarter: 2013Q4

REPORT INFORMATION
  Report Type: Spontaneous
  Country: US (occurrence: US)
  Receive Date: 20120727
  Receipt Date: 20131018
  Transmission Date: 20140711
  Serious: Yes (Hospitalization, Other)
  Sender: FDA-Public Use
  Company Number: US-PFIZER INC-2012180049

PATIENT
  Age: 54 Year
  Sex: Female
  Weight: 66.21 kg

DRUGS (6)
  1. LYRICA [Suspect]
     Indication: FIBROMYALGIA
     Dosage: 200 MG, 3X/DAY
     Dates: start: 2012
  2. LIPITOR [Suspect]
     Indication: BLOOD CHOLESTEROL INCREASED
     Dosage: 40 MG, DAILY
     Dates: start: 2009
  3. NORVASC [Suspect]
     Indication: HYPERTENSION
     Dosage: 5 MG, DAILY
     Dates: start: 2008
  4. ATIVAN [Concomitant]
     Indication: ANXIETY
     Dosage: UNK
     Dates: start: 2008
  5. ATIVAN [Concomitant]
     Indication: BIPOLAR DISORDER
  6. ATIVAN [Concomitant]
     Indication: PANIC DISORDER

REACTIONS (10)
  - Pneumonia [Unknown]
  - Myocardial infarction [Unknown]
  - Burning sensation [Unknown]
  - Neck pain [Unknown]
  - Back pain [Unknown]
  - Chest pain [Unknown]
  - Musculoskeletal pain [Unknown]
  - Fibromyalgia [Unknown]
  - Pain [Unknown]
  - Pain in extremity [Unknown]
